FAERS Safety Report 9255452 (Version 2)
Quarter: 2013Q2

REPORT INFORMATION
  Report Type: Spontaneous
  Country: US (occurrence: US)
  Receive Date: 20130425
  Receipt Date: 20130612
  Transmission Date: 20140414
  Serious: No
  Sender: FDA-Public Use
  Company Number: US-ASTRAZENECA-2013SE25589

PATIENT
  Age: 54 Year
  Sex: Female
  Weight: 71.7 kg

DRUGS (11)
  1. BRILINTA [Suspect]
     Indication: ACUTE CORONARY SYNDROME
     Route: 048
     Dates: start: 201303, end: 20130415
  2. BRILINTA [Suspect]
     Indication: ACUTE CORONARY SYNDROME
     Route: 048
  3. TOPROL XL [Suspect]
     Route: 048
     Dates: end: 20130329
  4. XANAX [Concomitant]
     Dosage: 0.25 MG HALF OR 1 BY MOUTH TWO TIMES A DAY AS NEEDED
     Route: 048
  5. HYZAAR [Concomitant]
     Dosage: 100-25 MG ONE PO DAILY
     Route: 048
  6. RANEXA [Concomitant]
  7. ASPIRIN [Concomitant]
  8. ATORVASTATIN CALCIUM [Concomitant]
     Route: 048
  9. MULTIVITAMINS [Concomitant]
     Route: 048
  10. PLAVIX [Concomitant]
  11. PLAVIX [Concomitant]

REACTIONS (5)
  - Back pain [Unknown]
  - Malaise [Unknown]
  - Fatigue [Recovered/Resolved]
  - Contusion [Unknown]
  - Dyspnoea [Recovered/Resolved]
